FAERS Safety Report 11725830 (Version 1)
Quarter: 2015Q4

REPORT INFORMATION
  Report Type: Report from Study
  Country: GB (occurrence: GB)
  Receive Date: 20151111
  Receipt Date: 20151111
  Transmission Date: 20160304
  Serious: Yes (Other)
  Sender: FDA-Public Use
  Company Number: GB-ROCHE-1529768

PATIENT
  Age: 43 Year
  Sex: Female
  Weight: 85.2 kg

DRUGS (14)
  1. ONDANSETRON A [Concomitant]
     Route: 042
     Dates: start: 20140701, end: 20141218
  2. DEXAMETHASONE. [Concomitant]
     Active Substance: DEXAMETHASONE
     Route: 042
     Dates: start: 20140701, end: 20141218
  3. FLUOROURACIL. [Suspect]
     Active Substance: FLUOROURACIL
     Indication: COLORECTAL CANCER METASTATIC
     Route: 042
     Dates: start: 20140701, end: 20141218
  4. FOLINIC ACID [Suspect]
     Active Substance: LEUCOVORIN
     Indication: COLORECTAL CANCER METASTATIC
     Route: 042
     Dates: start: 20140701, end: 20141218
  5. PARACETAMOL [Concomitant]
     Active Substance: ACETAMINOPHEN
     Dosage: 1-4G PRN
     Route: 048
     Dates: start: 20141016
  6. LACTULOSE. [Concomitant]
     Active Substance: LACTULOSE
     Dosage: 15-30 ML
     Route: 065
     Dates: start: 20140717
  7. DOMPERIDONE [Concomitant]
     Active Substance: DOMPERIDONE
     Dosage: 10-30MG PRN
     Route: 048
     Dates: start: 20140702
  8. BEVACIZUMAB [Suspect]
     Active Substance: BEVACIZUMAB
     Indication: COLORECTAL CANCER METASTATIC
     Dosage: LAST DOSE PRIOR TO SAE 18/DEC/2014
     Route: 042
     Dates: start: 20140701, end: 20141220
  9. IRINOTECAN [Suspect]
     Active Substance: IRINOTECAN
     Indication: COLORECTAL CANCER METASTATIC
     Route: 042
     Dates: start: 20140701, end: 20141218
  10. DEXAMETHASONE (ORAL) [Concomitant]
     Active Substance: DEXAMETHASONE
     Route: 048
     Dates: start: 20140701, end: 20141218
  11. FLUCONAZOLE. [Concomitant]
     Active Substance: FLUCONAZOLE
     Route: 048
     Dates: start: 20140718, end: 20141225
  12. ONDANSETRON [Concomitant]
     Active Substance: ONDANSETRON
     Route: 048
     Dates: start: 20140701, end: 20141219
  13. LOPERAMIDE [Concomitant]
     Active Substance: LOPERAMIDE
     Dosage: 2-16MG PRN
     Route: 048
     Dates: start: 20140702
  14. ATROPINE. [Concomitant]
     Active Substance: ATROPINE
     Route: 058
     Dates: start: 20140701, end: 20141218

REACTIONS (1)
  - Pulmonary embolism [Recovered/Resolved]

NARRATIVE: CASE EVENT DATE: 20150108
